FAERS Safety Report 25112094 (Version 1)
Quarter: 2025Q1

REPORT INFORMATION
  Report Type: Spontaneous
  Country: US (occurrence: US)
  Receive Date: 20250324
  Receipt Date: 20250324
  Transmission Date: 20250408
  Serious: No
  Sender: ELI LILLY AND COMPANY
  Company Number: US-ELI_LILLY_AND_COMPANY-US202503014031

PATIENT
  Age: 50 Year
  Sex: Female

DRUGS (1)
  1. EBGLYSS [Suspect]
     Active Substance: LEBRIKIZUMAB-LBKZ
     Indication: Product used for unknown indication
     Route: 065
     Dates: start: 202501

REACTIONS (4)
  - Skin irritation [Not Recovered/Not Resolved]
  - Pruritus [Not Recovered/Not Resolved]
  - Heart rate increased [Unknown]
  - Dyspnoea exertional [Unknown]
